FAERS Safety Report 23291188 (Version 2)
Quarter: 2024Q1

REPORT INFORMATION
  Report Type: Spontaneous
  Country: US (occurrence: US)
  Receive Date: 20231213
  Receipt Date: 20240307
  Transmission Date: 20240410
  Serious: Yes (Other)
  Sender: FDA-Public Use
  Company Number: US-ASTELLAS-2023US036878

PATIENT
  Age: 64 Year
  Sex: Female

DRUGS (2)
  1. PADCEV [Suspect]
     Active Substance: ENFORTUMAB VEDOTIN-EJFV
     Indication: Product used for unknown indication
     Dosage: 1.25 MG/KG, CYCLIC (CURRENTLY ON CYCLE 8)
     Route: 065
  2. PEMBROLIZUMAB [Suspect]
     Active Substance: PEMBROLIZUMAB
     Indication: Product used for unknown indication
     Dosage: 200 MG, CYCLIC (CURRENTLY ON CYCLE 8)
     Route: 065

REACTIONS (2)
  - Hepatitis [Recovered/Resolved]
  - Hypertransaminasaemia [Recovered/Resolved]
